FAERS Safety Report 10659981 (Version 16)
Quarter: 2015Q3

REPORT INFORMATION
  Report Type: Spontaneous
  Country: US (occurrence: US)
  Receive Date: 20141217
  Receipt Date: 20150914
  Transmission Date: 20151125
  Serious: Yes (Death, Hospitalization, Other)
  Sender: FDA-Public Use
  Company Number: US-GLAXOSMITHKLINE-A1079291A

PATIENT

DRUGS (3)
  1. VOTRIENT [Suspect]
     Active Substance: PAZOPANIB HYDROCHLORIDE
     Dosage: 800 MG, QD
     Dates: start: 20140401
  2. VOTRIENT [Suspect]
     Active Substance: PAZOPANIB HYDROCHLORIDE
     Indication: RENAL CANCER
     Dosage: 200 MG, U
     Route: 065
     Dates: start: 20140401
  3. VOTRIENT [Suspect]
     Active Substance: PAZOPANIB HYDROCHLORIDE
     Dosage: 800 MG, QD
     Route: 048
     Dates: start: 20150323, end: 20150508

REACTIONS (15)
  - Petechiae [Unknown]
  - Diarrhoea [Unknown]
  - Balance disorder [Unknown]
  - Hypotension [Unknown]
  - Gastrointestinal haemorrhage [Unknown]
  - Gastric varices [Unknown]
  - Volume blood decreased [Unknown]
  - Death [Fatal]
  - Dyspnoea [Unknown]
  - Hospitalisation [Recovered/Resolved]
  - Local swelling [Unknown]
  - Internal haemorrhage [Unknown]
  - Contusion [Not Recovered/Not Resolved]
  - Blood count abnormal [Unknown]
  - Feeling abnormal [Unknown]

NARRATIVE: CASE EVENT DATE: 2014
